FAERS Safety Report 15392608 (Version 2)
Quarter: 2018Q4

REPORT INFORMATION
  Report Type: Spontaneous
  Country: US (occurrence: US)
  Receive Date: 20180917
  Receipt Date: 20181025
  Transmission Date: 20190204
  Serious: Yes (Other)
  Sender: FDA-Public Use
  Company Number: US-CELGENEUS-USA-20180905715

PATIENT
  Sex: Female

DRUGS (1)
  1. OTEZLA [Suspect]
     Active Substance: APREMILAST
     Indication: PSORIASIS
     Dosage: 60 MILLIGRAM
     Route: 048
     Dates: start: 20160906

REACTIONS (5)
  - Headache [Unknown]
  - Rash [Unknown]
  - Diarrhoea [Unknown]
  - Abdominal pain upper [Unknown]
  - Insomnia [Unknown]

NARRATIVE: CASE EVENT DATE: 2016
